FAERS Safety Report 9225420 (Version 2)
Quarter: 2013Q2

REPORT INFORMATION
  Report Type: Report from Study
  Country: JP (occurrence: JP)
  Receive Date: 20130411
  Receipt Date: 20130620
  Transmission Date: 20140414
  Serious: Yes (Death)
  Sender: FDA-Public Use
  Company Number: JP-ROCHE-1210469

PATIENT
  Sex: 0

DRUGS (2)
  1. ALTEPLASE [Suspect]
     Indication: CEREBRAL THROMBOSIS
     Dosage: THERAPY DURATION ONCE
     Route: 037
  2. HEPARIN [Concomitant]
     Route: 050

REACTIONS (1)
  - Cerebral vasoconstriction [Fatal]
